FAERS Safety Report 25093452 (Version 1)
Quarter: 2025Q1

REPORT INFORMATION
  Report Type: Spontaneous
  Country: FR (occurrence: FR)
  Receive Date: 20250319
  Receipt Date: 20250319
  Transmission Date: 20250409
  Serious: Yes (Hospitalization)
  Sender: AUROBINDO
  Company Number: FR-AFSSAPS-LY2025000140

PATIENT
  Age: 78 Year
  Sex: Female
  Weight: 85.2 kg

DRUGS (9)
  1. DIGOXIN [Suspect]
     Active Substance: DIGOXIN
     Indication: Supraventricular tachycardia
     Dosage: 0.25 MILLIGRAM, Q8H
     Route: 065
     Dates: start: 20250115, end: 20250117
  2. DIGOXIN [Suspect]
     Active Substance: DIGOXIN
     Dosage: 0.25 MILLIGRAM, ONCE A DAY
     Route: 065
     Dates: start: 20250120, end: 20250121
  3. BISOPROLOL [Concomitant]
     Active Substance: BISOPROLOL
     Indication: Product use in unapproved indication
     Route: 065
  4. POTASSIUM CHLORIDE [Concomitant]
     Active Substance: POTASSIUM CHLORIDE
     Indication: Product use in unapproved indication
     Route: 065
  5. ELIQUIS [Concomitant]
     Active Substance: APIXABAN
     Indication: Product use in unapproved indication
     Route: 065
  6. FUROSEMIDE [Concomitant]
     Active Substance: FUROSEMIDE
     Indication: Product use in unapproved indication
     Route: 065
  7. KARDEGIC [Concomitant]
     Active Substance: ASPIRIN DL-LYSINE
     Indication: Product use in unapproved indication
     Route: 065
  8. LEVOTHYROXINE [Concomitant]
     Active Substance: LEVOTHYROXINE
     Indication: Product use in unapproved indication
     Route: 065
  9. PANTOPRAZOLE [Concomitant]
     Active Substance: PANTOPRAZOLE
     Indication: Product use in unapproved indication
     Route: 065

REACTIONS (3)
  - Vomiting [Recovered/Resolved]
  - Tremor [Recovered/Resolved]
  - Overdose [Recovered/Resolved]

NARRATIVE: CASE EVENT DATE: 20250121
